FAERS Safety Report 14537798 (Version 1)
Quarter: 2018Q1

REPORT INFORMATION
  Report Type: Spontaneous
  Country: FR (occurrence: FR)
  Receive Date: 20180215
  Receipt Date: 20180215
  Transmission Date: 20180509
  Serious: Yes (Hospitalization)
  Sender: FDA-Public Use
  Company Number: FR-MERCK KGAA-2042078

PATIENT
  Age: 76 Year
  Sex: Female

DRUGS (28)
  1. NOVOTHYROX [Suspect]
     Active Substance: LEVOTHYROXINE SODIUM
     Indication: PRODUCT USED FOR UNKNOWN INDICATION
  2. TIOTROPIUM [Concomitant]
     Active Substance: TIOTROPIUM
  3. MIRTAZAPINE. [Concomitant]
     Active Substance: MIRTAZAPINE
  4. ZESTORETIC [Concomitant]
     Active Substance: HYDROCHLOROTHIAZIDE\LISINOPRIL
  5. ISOSORBIDE DINITRATE. [Concomitant]
     Active Substance: ISOSORBIDE DINITRATE
  6. ETIFOXINE HYDROCHLORIDE [Concomitant]
     Active Substance: ETIFOXINE HYDROCHLORIDE
  7. TRIATEC [Concomitant]
     Active Substance: RAMIPRIL
  8. STRESAM [Concomitant]
     Active Substance: ETIFOXINE
  9. LEVOTHYROX NF [Suspect]
     Active Substance: LEVOTHYROXINE SODIUM
     Dates: start: 20170630
  10. XARELTO [Concomitant]
     Active Substance: RIVAROXABAN
  11. CORDARONE [Concomitant]
     Active Substance: AMIODARONE HYDROCHLORIDE
  12. DOLIPRANE [Concomitant]
     Active Substance: ACETAMINOPHEN
  13. GLYCEROL\PARAFFIN [Concomitant]
     Active Substance: GLYCERIN\PARAFFIN
  14. LASILIX [Concomitant]
     Active Substance: FUROSEMIDE
  15. ALLOPURINOL. [Concomitant]
     Active Substance: ALLOPURINOL
  16. BISOPROLOL HEMIFUMARATE [Concomitant]
     Active Substance: BISOPROLOL FUMARATE
  17. PAROXETINE. [Concomitant]
     Active Substance: PAROXETINE
  18. ZYLORIC [Concomitant]
     Active Substance: ALLOPURINOL
  19. RIVAROXABAN [Concomitant]
     Active Substance: RIVAROXABAN
  20. METFORMIN HYDROCHLORIDE. [Concomitant]
     Active Substance: METFORMIN HYDROCHLORIDE
  21. SITAGLIPTINE [Concomitant]
     Active Substance: SITAGLIPTIN
  22. AMIODARONE [Concomitant]
     Active Substance: AMIODARONE
  23. DIFFU K [Concomitant]
     Active Substance: POTASSIUM CHLORIDE
  24. LEVOTHYROX NF [Suspect]
     Active Substance: LEVOTHYROXINE SODIUM
  25. LEVOTHYROX NF [Suspect]
     Active Substance: LEVOTHYROXINE SODIUM
     Dates: start: 20170919
  26. BISOPROLOL [Concomitant]
     Active Substance: BISOPROLOL
  27. JANUVIA [Concomitant]
     Active Substance: SITAGLIPTIN PHOSPHATE
  28. NORSET [Concomitant]
     Active Substance: MIRTAZAPINE

REACTIONS (12)
  - Cardiac disorder [Recovered/Resolved]
  - Blood thyroid stimulating hormone abnormal [None]
  - Vertigo [Recovered/Resolved]
  - Alopecia [Not Recovered/Not Resolved]
  - Hot flush [Recovering/Resolving]
  - Blood pressure decreased [None]
  - Headache [None]
  - Apathy [Not Recovered/Not Resolved]
  - Weight decreased [None]
  - Malaise [Recovered/Resolved]
  - Balance disorder [None]
  - Fatigue [Not Recovered/Not Resolved]

NARRATIVE: CASE EVENT DATE: 2017
